FAERS Safety Report 12193479 (Version 1)
Quarter: 2016Q1

REPORT INFORMATION
  Report Type: Report from Study
  Country: AU (occurrence: AU)
  Receive Date: 20160320
  Receipt Date: 20160320
  Transmission Date: 20160526
  Serious: Yes (Other)
  Sender: FDA-Public Use
  Company Number: AU-REGENERON PHARMACEUTICALS, INC.-2016-13735

PATIENT

DRUGS (2)
  1. EYLEA [Suspect]
     Active Substance: AFLIBERCEPT
     Indication: NEOVASCULAR AGE-RELATED MACULAR DEGENERATION
     Dosage: 2 MG, 4-6 WEEKLY
     Route: 031
     Dates: start: 20140110
  2. EYLEA [Suspect]
     Active Substance: AFLIBERCEPT
     Dosage: 2 MG, 4-6 WEEKLY
     Route: 031
     Dates: start: 201602, end: 201602

REACTIONS (3)
  - Eye haemorrhage [Recovered/Resolved]
  - Cataract [Unknown]
  - Product use issue [Unknown]

NARRATIVE: CASE EVENT DATE: 20140110
